FAERS Safety Report 23670443 (Version 1)
Quarter: 2024Q1

REPORT INFORMATION
  Report Type: Spontaneous
  Country: GB (occurrence: GB)
  Receive Date: 20240326
  Receipt Date: 20240326
  Transmission Date: 20240409
  Serious: Yes (Other)
  Sender: FDA-Public Use
  Company Number: GB-MHRA-EMIS-3984-acddb543-c910-4a4c-b39f-cd64ce95bafc

PATIENT
  Age: 66 Year
  Sex: Male
  Weight: 75 kg

DRUGS (4)
  1. ATORVASTATIN [Suspect]
     Active Substance: ATORVASTATIN
     Indication: Adverse drug reaction
     Dosage: 1 DOSAGE FORM, DAILY
     Route: 065
     Dates: start: 20240209, end: 20240308
  2. ATORVASTATIN [Concomitant]
     Active Substance: ATORVASTATIN
     Indication: Adverse drug reaction
     Dosage: 1 DOSAGE FORM, DAILY
     Route: 065
     Dates: start: 20240209, end: 20240308
  3. FLUCLOXACILLIN [Concomitant]
     Active Substance: FLUCLOXACILLIN
     Indication: Adverse drug reaction
     Dosage: 1 DOSAGE FORM, FOUR TIMES/DAY
     Route: 065
     Dates: start: 20240112, end: 20240210
  4. HYLO FORTE [Concomitant]
     Indication: Penis disorder
     Dosage: 20 MILLILITER, AS DIRECTED,IN THE AFFECTED EYE(S)
     Route: 065
     Dates: start: 20240209

REACTIONS (1)
  - Deafness [Unknown]

NARRATIVE: CASE EVENT DATE: 20240301
